FAERS Safety Report 13995411 (Version 1)
Quarter: 2017Q3

REPORT INFORMATION
  Report Type: Spontaneous
  Country: US (occurrence: US)
  Receive Date: 20170921
  Receipt Date: 20170921
  Transmission Date: 20171128
  Serious: No
  Sender: FDA-Public Use
  Company Number: US-009507513-1709USA005547

PATIENT
  Sex: Female

DRUGS (3)
  1. PHENOL. [Suspect]
     Active Substance: PHENOL
  2. DIACETYLMORPHINE [Suspect]
     Active Substance: DIAMORPHINE
     Dosage: UNK
  3. ZEPATIER [Suspect]
     Active Substance: ELBASVIR\GRAZOPREVIR
     Indication: HEPATITIS C
     Dosage: UNK
     Route: 048

REACTIONS (3)
  - Vomiting [Unknown]
  - Retching [Unknown]
  - Nausea [Unknown]
